FAERS Safety Report 6887342-5 (Version None)
Quarter: 2010Q3

REPORT INFORMATION
  Report Type: 
  Country: None (occurrence: None)
  Receive Date: 20100730
  Receipt Date: 20090902
  Transmission Date: 20110219
  Serious: No
  Sender: FDA-Public Use
  Company Number: A0805693A

PATIENT
  Age: 26 Year
  Sex: Female

DRUGS (4)
  1. IMITREX [Suspect]
     Indication: MIGRAINE
     Dosage: 100MG AS REQUIRED
     Route: 048
     Dates: start: 20090701, end: 20090801
  2. GABAPENTIN [Concomitant]
  3. LITHIUM CARBONATE [Concomitant]
  4. FLUOXETINE HCL [Concomitant]

REACTIONS (4)
  - DRUG INEFFECTIVE [None]
  - EYE PAIN [None]
  - HYPERACUSIS [None]
  - PHOTOPHOBIA [None]
